FAERS Safety Report 11004588 (Version 1)
Quarter: 2015Q2

REPORT INFORMATION
  Report Type: Report from Study
  Country: BE (occurrence: BE)
  Receive Date: 20150409
  Receipt Date: 20150409
  Transmission Date: 20150821
  Serious: Yes (Hospitalization)
  Sender: FDA-Public Use
  Company Number: BE-ABBVIE-14P-013-1310599-00

PATIENT
  Sex: Male

DRUGS (5)
  1. DUODOPA [Suspect]
     Active Substance: CARBIDOPA\LEVODOPA
     Indication: PARKINSON^S DISEASE
     Dosage: AM 8ML,CD2.2ML/H DURING 16H,ED 1ML
     Route: 050
     Dates: start: 20140929, end: 20141016
  2. DUODOPA [Suspect]
     Active Substance: CARBIDOPA\LEVODOPA
     Dosage: AM 9.5ML,CD2.9ML/H DURING 16H,ED 1.5ML
     Route: 050
     Dates: start: 20141024, end: 20141119
  3. DUODOPA [Suspect]
     Active Substance: CARBIDOPA\LEVODOPA
     Dosage: AM 9.5ML,CD 2.9ML/H DURING 16H, ED 1.5ML
     Route: 050
     Dates: start: 20141127
  4. DUODOPA [Suspect]
     Active Substance: CARBIDOPA\LEVODOPA
     Dosage: AM 9.5ML,CD2.9ML/H DURING 16H,ED 1.5ML
     Route: 050
     Dates: start: 20141119, end: 20141127
  5. DUODOPA [Suspect]
     Active Substance: CARBIDOPA\LEVODOPA
     Dosage: AM 8ML,CD2.7ML/H DURING 16H,ED 1.5ML
     Route: 050
     Dates: start: 20141016, end: 20141024

REACTIONS (3)
  - Stoma site infection [Unknown]
  - Intentional medical device removal by patient [Recovered/Resolved]
  - Incorrect route of drug administration [Recovered/Resolved]
